FAERS Safety Report 6222186-9 (Version None)
Quarter: 2009Q2

REPORT INFORMATION
  Report Type: 
  Country: None (occurrence: None)
  Receive Date: 20090609
  Receipt Date: 20090605
  Transmission Date: 20091009
  Serious: Yes (Hospitalization, Other)
  Sender: FDA-Public Use
  Company Number: 171374712009/ 000007

PATIENT
  Sex: Female

DRUGS (1)
  1. STAY SAFE 2.5% DEX. LM 2.5/3L, 5PK [Suspect]
     Indication: RENAL FAILURE CHRONIC
     Dosage: INTRAPERITONEAL
     Route: 033
     Dates: start: 20070806

REACTIONS (3)
  - PERITONITIS [None]
  - PRODUCT CONTAINER ISSUE [None]
  - PRODUCT QUALITY ISSUE [None]
